FAERS Safety Report 11621333 (Version 3)
Quarter: 2015Q4

REPORT INFORMATION
  Report Type: Spontaneous
  Country: US (occurrence: US)
  Receive Date: 20151012
  Receipt Date: 20151028
  Transmission Date: 20160304
  Serious: Yes (Other)
  Sender: FDA-Public Use
  Company Number: US-LPDUSPRD-20150777

PATIENT
  Sex: Male

DRUGS (2)
  1. ZINC SULFATE [Suspect]
     Active Substance: ZINC SULFATE\ZINC SULFATE ANHYDROUS
     Dosage: DOSE UNKNOWN
     Route: 042
  2. SELENIUM INJECTION (6510-25) [Suspect]
     Active Substance: SELENIUM
     Dosage: DOSE UNKNOWN
     Route: 042

REACTIONS (10)
  - Hypoglycaemia [Unknown]
  - Muscle rigidity [Unknown]
  - Syncope [Unknown]
  - Lethargy [Unknown]
  - Loss of consciousness [Unknown]
  - Hyperhidrosis [Unknown]
  - Blood pressure increased [Unknown]
  - Feeling abnormal [Unknown]
  - Skin discolouration [Unknown]
  - Heart rate increased [Unknown]
